FAERS Safety Report 13153983 (Version 5)
Quarter: 2017Q1

REPORT INFORMATION
  Report Type: Report from Study
  Country: US (occurrence: US)
  Receive Date: 20170126
  Receipt Date: 20170317
  Transmission Date: 20170428
  Serious: Yes (Hospitalization, Other)
  Sender: FDA-Public Use
  Company Number: US-TAKEDA-2017TUS001457

PATIENT
  Age: 38 Year
  Sex: Female

DRUGS (1)
  1. VEDOLIZUMAB [Suspect]
     Active Substance: VEDOLIZUMAB
     Indication: CROHN^S DISEASE
     Dosage: UNK
     Route: 042

REACTIONS (12)
  - Hospitalisation [Unknown]
  - Intestinal obstruction [Unknown]
  - Dyspepsia [Unknown]
  - Pain [Unknown]
  - Decreased appetite [Unknown]
  - Cerebrovascular accident [Unknown]
  - General physical health deterioration [Unknown]
  - Failed in vitro fertilisation [Unknown]
  - Crohn^s disease [Not Recovered/Not Resolved]
  - Reading disorder [Unknown]
  - Arthralgia [Unknown]
  - Reversible cerebral vasoconstriction syndrome [Unknown]

NARRATIVE: CASE EVENT DATE: 201603
